FAERS Safety Report 21999277 (Version 1)
Quarter: 2023Q1

REPORT INFORMATION
  Report Type: Spontaneous
  Country: GB (occurrence: GB)
  Receive Date: 20230216
  Receipt Date: 20230216
  Transmission Date: 20230417
  Serious: Yes (Other)
  Sender: FDA-Public Use
  Company Number: GB-MYLANLABS-2023M1016667

PATIENT
  Age: 46 Year
  Sex: Female

DRUGS (6)
  1. IBUPROFEN [Suspect]
     Active Substance: IBUPROFEN
     Indication: Analgesic therapy
     Dosage: UNK, IBUPROFEN-IMPREGNATED DRESSING
     Route: 065
  2. OXYCODONE [Suspect]
     Active Substance: OXYCODONE
     Indication: Analgesic therapy
     Dosage: 15 MILLIGRAM, TID, OXYCODONE ORAL SOLUTION 5 MG/5 ML AT A DOSE OF 15 MG THREE TIMES A DAY, AS REQUIR
     Route: 048
  3. NORTRIPTYLINE [Suspect]
     Active Substance: NORTRIPTYLINE
     Indication: Analgesic therapy
     Dosage: 10 MILLIGRAM, QD
     Route: 065
  4. FENTANYL [Suspect]
     Active Substance: FENTANYL
     Indication: Analgesic therapy
     Dosage: 400 MICROGRAM, QH (FENTANYL TRANSDERMAL PATCH 100 MICROGRAM/ HOUR..)
     Route: 062
  5. ABSTRAL [Suspect]
     Active Substance: FENTANYL CITRATE
     Indication: Analgesic therapy
     Dosage: 200 MICROGRAM, QID, 200 MICROGRAM UP TO FOUR TIMES DAILY, AS REQUIRED.
     Route: 060
  6. ACETAMINOPHEN [Suspect]
     Active Substance: ACETAMINOPHEN
     Indication: Analgesic therapy
     Dosage: 1 GRAM, PARACETAMOL ORAL SOLUTION 500 MG/5 ML AT A DOSE OF 1 G UP TO FOUR TIMES A DAY.
     Route: 048

REACTIONS (2)
  - Drug ineffective [Unknown]
  - Off label use [Unknown]
